FAERS Safety Report 4477446-9 (Version None)
Quarter: 2004Q4

REPORT INFORMATION
  Report Type: 
  Country: None (occurrence: None)
  Receive Date: 20041008
  Receipt Date: 20040929
  Transmission Date: 20050328
  Serious: Yes (Death, Hospitalization)
  Sender: FDA-Public Use
  Company Number: WSDF_00425

PATIENT
  Age: 65 Year
  Sex: Male

DRUGS (3)
  1. WINRHO SDF [Suspect]
     Dates: start: 20040820, end: 20040820
  2. GAMUNEX [Concomitant]
  3. PLATELETS [Concomitant]

REACTIONS (4)
  - ANTI-HBC ANTIBODY POSITIVE [None]
  - ENCEPHALOPATHY [None]
  - HEPATITIS B ANTIBODY POSITIVE [None]
  - HEPATITIS B SURFACE ANTIGEN POSITIVE [None]
